FAERS Safety Report 17714001 (Version 1)
Quarter: 2020Q2

REPORT INFORMATION
  Report Type: Spontaneous
  Country: AU (occurrence: AU)
  Receive Date: 20200427
  Receipt Date: 20200427
  Transmission Date: 20200714
  Serious: Yes (Hospitalization)
  Sender: FDA-Public Use
  Company Number: AU-MYLANLABS-2020M1041225

PATIENT
  Sex: Female

DRUGS (1)
  1. LOXALATE [Suspect]
     Active Substance: ESCITALOPRAM OXALATE
     Indication: PRODUCT USED FOR UNKNOWN INDICATION
     Dosage: UNK

REACTIONS (9)
  - Fear of death [Unknown]
  - Condition aggravated [Unknown]
  - Confusional state [Unknown]
  - Dizziness [Unknown]
  - Product dose omission [Unknown]
  - Salivary hypersecretion [Unknown]
  - Back pain [Unknown]
  - Pain [Unknown]
  - Chest discomfort [Unknown]
